FAERS Safety Report 9962803 (Version 1)
Quarter: 2014Q1

REPORT INFORMATION
  Report Type: Spontaneous
  Country: FR (occurrence: FR)
  Receive Date: 20140305
  Receipt Date: 20140305
  Transmission Date: 20141002
  Serious: Yes (Hospitalization)
  Sender: FDA-Public Use
  Company Number: FR-ASTRAZENECA-2014SE14627

PATIENT
  Age: 805 Month
  Sex: Male

DRUGS (11)
  1. INEXIUM [Suspect]
     Route: 048
     Dates: end: 201401
  2. STILNOX [Suspect]
     Route: 048
     Dates: end: 201401
  3. AMLOR (NON AZ PRODUCT) [Suspect]
     Route: 048
     Dates: end: 201401
  4. AMOXICILLINE/CLAVULANIC ACID (MYLAN) [Suspect]
     Dosage: 500/62.5,  2 DF X 3/D
     Route: 048
     Dates: start: 20140108, end: 20140113
  5. OXYNORM [Concomitant]
     Route: 048
     Dates: end: 201401
  6. DUROGESIC [Concomitant]
     Dosage: 50 MICROG/H
     Dates: end: 201401
  7. ACUPAN [Concomitant]
  8. MOVICOL [Concomitant]
  9. LYRICA [Concomitant]
  10. ARTISIAL [Concomitant]
  11. ROCEPHINE [Concomitant]
     Dates: start: 20140106, end: 20140108

REACTIONS (5)
  - Renal failure acute [Recovering/Resolving]
  - Hyperthermia [Recovered/Resolved]
  - Respiratory tract congestion [Unknown]
  - Inflammation [Recovering/Resolving]
  - Hepatocellular injury [Recovering/Resolving]
